FAERS Safety Report 5716946-8 (Version None)
Quarter: 2008Q2

REPORT INFORMATION
  Report Type: 
  Country: None (occurrence: None)
  Receive Date: 20080424
  Receipt Date: 20080415
  Transmission Date: 20081010
  Serious: Yes (Death)
  Sender: FDA-Public Use
  Company Number: PE-PFIZER INC-2008035130

PATIENT
  Sex: Male

DRUGS (1)
  1. VFEND [Suspect]
     Dates: start: 20080331, end: 20080401

REACTIONS (1)
  - DEATH [None]
